FAERS Safety Report 7668237-6 (Version None)
Quarter: 2011Q3

REPORT INFORMATION
  Report Type: 
  Country: None (occurrence: None)
  Receive Date: 20110808
  Receipt Date: 20110801
  Transmission Date: 20111222
  Serious: Yes (Other)
  Sender: FDA-Public Use
  Company Number: US-JNJFOC-20110604037

PATIENT
  Sex: Female

DRUGS (6)
  1. LEVAQUIN [Suspect]
     Indication: DIVERTICULITIS
     Route: 048
  2. PREDNISONE [Suspect]
     Indication: SWELLING
     Route: 065
  3. HYDROCHLOROTHIAZIDE [Concomitant]
     Indication: HYPERTENSION
     Route: 065
  4. LEVAQUIN [Suspect]
     Indication: BACTERIAL INFECTION
     Route: 065
     Dates: start: 20090301
  5. LORAZEPAM [Concomitant]
     Indication: HOT FLUSH
     Route: 065
     Dates: start: 20041101
  6. LEVAQUIN [Suspect]
     Indication: SINUSITIS
     Route: 048

REACTIONS (2)
  - TENDON RUPTURE [None]
  - ROTATOR CUFF SYNDROME [None]
